FAERS Safety Report 10800683 (Version 1)
Quarter: 2015Q1

REPORT INFORMATION
  Report Type: Spontaneous
  Country: GB (occurrence: GB)
  Receive Date: 20150216
  Receipt Date: 20150216
  Transmission Date: 20150721
  Serious: Yes (Other)
  Sender: FDA-Public Use
  Company Number: GB-ASTRAZENECA-2015SE13224

PATIENT
  Sex: Male

DRUGS (1)
  1. LOSEC [Suspect]
     Active Substance: OMEPRAZOLE
     Route: 048

REACTIONS (3)
  - Product use issue [Unknown]
  - Throat cancer [Unknown]
  - Drug ineffective [Unknown]
